FAERS Safety Report 25082321 (Version 2)
Quarter: 2025Q2

REPORT INFORMATION
  Report Type: Spontaneous
  Country: US (occurrence: US)
  Receive Date: 20250317
  Receipt Date: 20250507
  Transmission Date: 20250716
  Serious: Yes (Other)
  Sender: CHEPLAPHARM
  Company Number: US-CHEPLA-2025003235

PATIENT
  Age: 68 Year
  Sex: Female

DRUGS (6)
  1. CAPECITABINE [Suspect]
     Active Substance: CAPECITABINE
     Indication: Breast cancer metastatic
     Route: 048
     Dates: start: 2023
  2. TUKYSA [Suspect]
     Active Substance: TUCATINIB
     Indication: Breast cancer metastatic
     Route: 048
     Dates: start: 2021
  3. IRON [Suspect]
     Active Substance: IRON
  4. MORPHINE [Suspect]
     Active Substance: MORPHINE
  5. DOCETAXEL [Suspect]
     Active Substance: DOCETAXEL
     Indication: Breast cancer metastatic
  6. DOCETAXEL [Suspect]
     Active Substance: DOCETAXEL
     Indication: Disease progression

REACTIONS (9)
  - Hyperbilirubinaemia [Unknown]
  - Systemic lupus erythematosus [Unknown]
  - Lichenoid keratosis [Unknown]
  - Drug eruption [Unknown]
  - Muscle spasms [Unknown]
  - Fatigue [Unknown]
  - Constipation [Recovered/Resolved]
  - Lymphoedema [Recovering/Resolving]
  - Neoplasm progression [Unknown]

NARRATIVE: CASE EVENT DATE: 20231216
